FAERS Safety Report 6693392-4 (Version None)
Quarter: 2010Q2

REPORT INFORMATION
  Report Type: 
  Country: None (occurrence: None)
  Receive Date: 20100420
  Receipt Date: 20070926
  Transmission Date: 20101027
  Serious: Yes (Hospitalization)
  Sender: FDA-Public Use
  Company Number: 060008L07JPN

PATIENT
  Age: 24 Year
  Sex: Female

DRUGS (2)
  1. CLOMIPHENE CITRATE [Suspect]
  2. MENOTROPINS [Concomitant]
     Indication: OVULATION INDUCTION

REACTIONS (7)
  - ABORTION THREATENED [None]
  - HETEROTOPIC PREGNANCY [None]
  - INTRA-UTERINE DEATH [None]
  - POST PROCEDURAL HAEMORRHAGE [None]
  - PREMATURE RUPTURE OF MEMBRANES [None]
  - RUPTURED ECTOPIC PREGNANCY [None]
  - TWIN PREGNANCY [None]
